FAERS Safety Report 5712991-7 (Version None)
Quarter: 2008Q2

REPORT INFORMATION
  Report Type: 
  Country: None (occurrence: None)
  Receive Date: 20080422
  Receipt Date: 20080410
  Transmission Date: 20081010
  Serious: Yes (Death)
  Sender: FDA-Public Use
  Company Number: US-WYE-H03398608

PATIENT
  Age: 57 Year
  Sex: Male

DRUGS (1)
  1. TIGECYCLINE [Suspect]
     Indication: INFECTION
     Dosage: UNKNOWN DOSE
     Dates: start: 20070501

REACTIONS (4)
  - ATRIAL FIBRILLATION [None]
  - HYPOVOLAEMIC SHOCK [None]
  - PANCREATITIS NECROTISING [None]
  - RENAL FAILURE ACUTE [None]
